FAERS Safety Report 11044827 (Version 2)
Quarter: 2015Q2

REPORT INFORMATION
  Report Type: Spontaneous
  Country: FR (occurrence: FR)
  Receive Date: 20150417
  Receipt Date: 20150421
  Transmission Date: 20150821
  Serious: Yes (Hospitalization)
  Sender: FDA-Public Use
  Company Number: FR-009507513-1504FRA014707

PATIENT
  Age: 57 Year
  Sex: Male

DRUGS (3)
  1. EMEND [Suspect]
     Active Substance: APREPITANT
     Indication: ANTIEMETIC SUPPORTIVE CARE
     Dosage: UNK
     Route: 048
     Dates: start: 20140128, end: 2014
  2. DOXORUBICIN [Concomitant]
     Active Substance: DOXORUBICIN
     Dosage: UNK UNK, CYCLICAL
     Route: 042
     Dates: start: 20140128, end: 20140207
  3. IFOSFAMIDE. [Suspect]
     Active Substance: IFOSFAMIDE
     Dosage: UNK UNK, CYCLICAL
     Route: 042
     Dates: start: 20140128, end: 20140201

REACTIONS (1)
  - Encephalopathy [Recovered/Resolved]

NARRATIVE: CASE EVENT DATE: 201401
